FAERS Safety Report 14841420 (Version 1)
Quarter: 2018Q2

REPORT INFORMATION
  Report Type: Spontaneous
  Country: US (occurrence: US)
  Receive Date: 20180418
  Receipt Date: 20180418
  Transmission Date: 20180711
  Serious: Yes (Other)
  Sender: FDA-Public Use
  Company Number: None

PATIENT
  Age: 66 Year
  Sex: Female
  Weight: 54.43 kg

DRUGS (1)
  1. PROLIA [Suspect]
     Active Substance: DENOSUMAB
     Indication: OSTEOPOROSIS POSTMENOPAUSAL
     Dosage: QUANTITY:1 DF DOSAGE FORM;OTHER FREQUENCY:2X^S A YEAR;OTHER ROUTE:INJECTION?
     Dates: start: 201706, end: 20171228

REACTIONS (3)
  - Gingivitis [None]
  - Noninfective gingivitis [None]
  - Gingival bleeding [None]

NARRATIVE: CASE EVENT DATE: 20180120
